FAERS Safety Report 6884351-7 (Version None)
Quarter: 2010Q3

REPORT INFORMATION
  Report Type: 
  Country: None (occurrence: None)
  Receive Date: 20100729
  Receipt Date: 20070725
  Transmission Date: 20110219
  Serious: No
  Sender: FDA-Public Use
  Company Number: US-PFIZER INC-2007053868

PATIENT
  Sex: Male
  Weight: 75 kg

DRUGS (3)
  1. CELEBREX [Suspect]
     Indication: SCIATICA
     Dates: start: 20070601
  2. DRUG USED IN DIABETES [Concomitant]
  3. ALL OTHER THERAPEUTIC PRODUCTS [Concomitant]

REACTIONS (1)
  - SCIATICA [None]
